FAERS Safety Report 7959181-5 (Version None)
Quarter: 2011Q4

REPORT INFORMATION
  Report Type: 
  Country: None (occurrence: None)
  Receive Date: 20111206
  Receipt Date: 20111128
  Transmission Date: 20120403
  Serious: Yes (Other)
  Sender: FDA-Public Use
  Company Number: US-SANOFI-AVENTIS-2011SA078303

PATIENT
  Age: 62 Year
  Sex: Male

DRUGS (9)
  1. INSULIN ASPART [Suspect]
     Indication: INSULIN-REQUIRING TYPE 2 DIABETES MELLITUS
     Route: 065
  2. METFORMIN HCL [Concomitant]
  3. GLYBURIDE [Concomitant]
  4. PIOGLITAZONE [Concomitant]
  5. INSULIN GLARGINE [Suspect]
     Indication: INSULIN-REQUIRING TYPE 2 DIABETES MELLITUS
     Route: 065
  6. EZETIMIBE [Concomitant]
  7. ASPIRIN [Concomitant]
  8. ACITRETIN [Concomitant]
     Indication: PSORIASIS
  9. ACITRETIN [Concomitant]

REACTIONS (5)
  - ATYPICAL MYCOBACTERIAL INFECTION [None]
  - SKIN LESION [None]
  - PERIUMBILICAL ABSCESS [None]
  - SKIN ULCER [None]
  - NODULE [None]
